FAERS Safety Report 14929201 (Version 1)
Quarter: 2018Q2

REPORT INFORMATION
  Report Type: Spontaneous
  Country: US (occurrence: US)
  Receive Date: 20180523
  Receipt Date: 20180523
  Transmission Date: 20180711
  Serious: No
  Sender: FDA-Public Use
  Company Number: US-GLAXOSMITHKLINE-US2018086081

PATIENT
  Age: 81 Year
  Sex: Male

DRUGS (1)
  1. DICLOFENAC SODIUM GEL [Suspect]
     Active Substance: DICLOFENAC SODIUM
     Indication: MUSCLE STRAIN
     Dosage: 2 G, 3 DOSES
     Dates: start: 20180511, end: 20180514

REACTIONS (3)
  - Off label use [Unknown]
  - Underdose [Unknown]
  - Inappropriate schedule of drug administration [Unknown]
